FAERS Safety Report 10098826 (Version 1)
Quarter: 2014Q2

REPORT INFORMATION
  Report Type: Spontaneous
  Country: MY (occurrence: MY)
  Receive Date: 20140423
  Receipt Date: 20140423
  Transmission Date: 20141212
  Serious: Yes (Other)
  Sender: FDA-Public Use
  Company Number: MY-BRISTOL-MYERS SQUIBB COMPANY-20652954

PATIENT
  Age: 31 Year
  Sex: Male

DRUGS (6)
  1. STOCRIN CAPS [Suspect]
     Indication: RETROVIRAL INFECTION
     Route: 048
  2. STAVUDINE [Suspect]
     Indication: RETROVIRAL INFECTION
  3. LAMIVUDINE [Suspect]
     Indication: RETROVIRAL INFECTION
  4. ISONIAZID [Concomitant]
  5. RIFAMPIN [Concomitant]
  6. ETHAMBUTOL HCL [Concomitant]

REACTIONS (2)
  - Hepatitis [Unknown]
  - Drug reaction with eosinophilia and systemic symptoms [Unknown]
